FAERS Safety Report 4448508-7 (Version None)
Quarter: 2004Q3

REPORT INFORMATION
  Report Type: 
  Country: None (occurrence: None)
  Receive Date: 20040914
  Receipt Date: 20040902
  Transmission Date: 20050211
  Serious: Yes (Hospitalization, Other)
  Sender: FDA-Public Use
  Company Number: US-JNJFOC-20031104251

PATIENT
  Sex: Female
  Weight: 49.9 kg

DRUGS (14)
  1. REMICADE [Suspect]
     Route: 042
  2. REMICADE [Suspect]
     Indication: CROHN'S DISEASE
     Dosage: 245-260 MG WITH DOSING CHANGES BASED ON WEIGHT ONLY.
     Route: 042
  3. PREDNISONE [Concomitant]
     Indication: CROHN'S DISEASE
     Dosage: 5-20 MG DAILY DURING PREGNANCY.
     Route: 049
  4. TRAZODONE [Concomitant]
  5. SOLU-MEDROL [Concomitant]
  6. REGLAN [Concomitant]
  7. FESO4 [Concomitant]
     Route: 049
  8. NIFEDIPINE [Concomitant]
     Route: 049
  9. DARVOCET-N 100 [Concomitant]
  10. DARVOCET-N 100 [Concomitant]
     Dosage: END DATE REPORTED AS ^SPORADIC?^.
  11. OXYCODONE HCL [Concomitant]
     Route: 049
  12. ADVIL [Concomitant]
     Dosage: END DATE REPORTED AS ^SPORADIC^.
     Route: 049
  13. HYDRALAZINE HCL [Concomitant]
     Route: 042
  14. MAGNESIUM SULFATE [Concomitant]
     Route: 042

REACTIONS (8)
  - BACK PAIN [None]
  - BLOOD PRESSURE INCREASED [None]
  - CONDITION AGGRAVATED [None]
  - CROHN'S DISEASE [None]
  - DRUG EXPOSURE DURING PREGNANCY [None]
  - DRUG INEFFECTIVE [None]
  - POLYHYDRAMNIOS [None]
  - UTERINE CONTRACTIONS DURING PREGNANCY [None]
